FAERS Safety Report 8340569-8 (Version None)
Quarter: 2012Q2

REPORT INFORMATION
  Report Type: 
  Country: None (occurrence: None)
  Receive Date: 20120507
  Receipt Date: 20091016
  Transmission Date: 20120825
  Serious: No
  Sender: FDA-Public Use
  Company Number: US-TEVA-2009010509

PATIENT
  Sex: Male
  Weight: 80.358 kg

DRUGS (3)
  1. RITUXAN [Concomitant]
  2. TREANDA [Suspect]
     Indication: NON-HODGKIN'S LYMPHOMA
     Route: 042
     Dates: start: 20090101
  3. GLUCOTROL [Concomitant]

REACTIONS (3)
  - MALAISE [None]
  - FATIGUE [None]
  - INFLUENZA LIKE ILLNESS [None]
